FAERS Safety Report 6191028-2 (Version None)
Quarter: 2009Q2

REPORT INFORMATION
  Report Type: 
  Country: None (occurrence: None)
  Receive Date: 20090513
  Receipt Date: 20090430
  Transmission Date: 20091009
  Serious: Yes (Hospitalization, Other)
  Sender: FDA-Public Use
  Company Number: 234889K09USA

PATIENT
  Age: 43 Year
  Sex: Male

DRUGS (2)
  1. REBIF [Suspect]
     Indication: MULTIPLE SCLEROSIS
  2. BETASERON [Suspect]
     Indication: MULTIPLE SCLEROSIS
     Dosage: 8, 1 IN 2 DAYS, SUBCUTANEOUS
     Route: 058
     Dates: start: 20070111

REACTIONS (9)
  - ANGER [None]
  - DEPRESSION [None]
  - FEELING ABNORMAL [None]
  - INJECTION SITE CELLULITIS [None]
  - INJECTION SITE ERYTHEMA [None]
  - MOVEMENT DISORDER [None]
  - NEGATIVE THOUGHTS [None]
  - REFUSAL OF TREATMENT BY PATIENT [None]
  - WRONG TECHNIQUE IN DRUG USAGE PROCESS [None]
